FAERS Safety Report 4352349-9 (Version None)
Quarter: 2004Q2

REPORT INFORMATION
  Report Type: 
  Country: None (occurrence: None)
  Receive Date: 20040427
  Receipt Date: 20031113
  Transmission Date: 20050107
  Serious: Yes (Disabling)
  Sender: FDA-Public Use
  Company Number: WAES 0311USA01797

PATIENT
  Age: 56 Year
  Sex: Female

DRUGS (3)
  1. SINGULAIR [Suspect]
     Indication: ASTHMA
     Dosage: PO
     Route: 048
  2. FLOVENT [Concomitant]
  3. SEREVENT [Concomitant]

REACTIONS (1)
  - MUSCLE CRAMP [None]
